FAERS Safety Report 6470324-5 (Version None)
Quarter: 2009Q4

REPORT INFORMATION
  Report Type: 
  Country: None (occurrence: None)
  Receive Date: 20091203
  Receipt Date: 20091124
  Transmission Date: 20100525
  Serious: Yes (Hospitalization)
  Sender: FDA-Public Use
  Company Number: US-MERCK-0911USA02697

PATIENT
  Age: 62 Year
  Sex: Female

DRUGS (9)
  1. JANUVIA [Suspect]
     Indication: DIABETES MELLITUS
     Route: 048
     Dates: end: 20090925
  2. REGLAN [Concomitant]
     Route: 065
  3. SIMVASTATIN [Concomitant]
     Route: 065
  4. OXYBUTYNIN [Concomitant]
     Route: 065
  5. XANAX [Concomitant]
     Route: 065
  6. METOPROLOL [Concomitant]
     Route: 065
  7. PRILOSEC [Concomitant]
     Route: 065
  8. INSULIN [Concomitant]
     Route: 065
  9. NOVOLOG [Concomitant]
     Indication: DIABETES MELLITUS
     Route: 065

REACTIONS (5)
  - ANKLE FRACTURE [None]
  - FALL [None]
  - FOOT FRACTURE [None]
  - LOWER LIMB FRACTURE [None]
  - SPINAL FRACTURE [None]
